FAERS Safety Report 14593005 (Version 2)
Quarter: 2018Q1

REPORT INFORMATION
  Report Type: Spontaneous
  Country: CO (occurrence: CO)
  Receive Date: 20180302
  Receipt Date: 20180312
  Transmission Date: 20180509
  Serious: Yes (Death, Hospitalization, Other)
  Sender: FDA-Public Use
  Company Number: CO-BAYER-2017-175825

PATIENT
  Age: 72 Year
  Sex: Male

DRUGS (5)
  1. ACETYLSALICYLIC ACID({=100 MG) [Suspect]
     Active Substance: ASPIRIN
     Dosage: 2 DF, ONCE
     Dates: start: 20170831
  2. CARVEDILOL. [Concomitant]
     Active Substance: CARVEDILOL
     Dosage: 12.5 MG, BID
  3. ENALAPRIL [Concomitant]
     Active Substance: ENALAPRIL
     Dosage: 5 MG, BID
  4. XARELTO [Suspect]
     Active Substance: RIVAROXABAN
     Indication: ATRIAL FIBRILLATION
     Dosage: 20 MG, QD
     Dates: start: 2015
  5. ATORVASTATIN [Concomitant]
     Active Substance: ATORVASTATIN

REACTIONS (37)
  - Ischaemia [None]
  - Loss of consciousness [None]
  - Urinary incontinence [None]
  - Breath sounds abnormal [None]
  - Mucosal dryness [None]
  - Cardio-respiratory arrest [Fatal]
  - Cerebral ischaemia [None]
  - Hyperglycaemia [None]
  - Coma scale abnormal [None]
  - Increased upper airway secretion [None]
  - Oedema peripheral [None]
  - Respiratory distress [None]
  - Dyspnoea [None]
  - Lethargy [None]
  - Left ventricular dysfunction [None]
  - Cerebral ischaemia [None]
  - Dysarthria [None]
  - Dysphagia [None]
  - Pyrexia [None]
  - Pyrexia [None]
  - Cerebrovascular disorder [None]
  - Somnolence [None]
  - Blood urine present [None]
  - Atrial fibrillation [None]
  - Hyperreflexia [None]
  - Tachypnoea [None]
  - Cardiomegaly [None]
  - Pneumonia aspiration [None]
  - Dyslalia [None]
  - Headache [None]
  - Sensory level abnormal [None]
  - Haemorrhagic transformation stroke [None]
  - Oral disorder [None]
  - Brain oedema [None]
  - Hypotonia [None]
  - Pain [None]
  - Hyperhidrosis [None]

NARRATIVE: CASE EVENT DATE: 20170406
